FAERS Safety Report 17476454 (Version 1)
Quarter: 2020Q1

REPORT INFORMATION
  Report Type: Spontaneous
  Country: US (occurrence: US)
  Receive Date: 20200228
  Receipt Date: 20200228
  Transmission Date: 20200409
  Serious: Yes (Other)
  Sender: FDA-Public Use
  Company Number: US-PFIZER INC-2020087353

PATIENT
  Age: 86 Year
  Sex: Male
  Weight: 57.6 kg

DRUGS (1)
  1. TIKOSYN [Suspect]
     Active Substance: DOFETILIDE
     Dosage: 250 UG, 2X/DAY
     Route: 048

REACTIONS (9)
  - Pulmonary fibrosis [Unknown]
  - Cough [Unknown]
  - Dyspnoea exertional [Unknown]
  - Dyspnoea [Unknown]
  - Ventricular extrasystoles [Unknown]
  - Dyslipidaemia [Unknown]
  - Essential hypertension [Unknown]
  - Extrasystoles [Unknown]
  - Arteriosclerosis coronary artery [Unknown]

NARRATIVE: CASE EVENT DATE: 20140612
